FAERS Safety Report 17230336 (Version 1)
Quarter: 2020Q1

REPORT INFORMATION
  Report Type: Spontaneous
  Country: US (occurrence: US)
  Receive Date: 20200103
  Receipt Date: 20200103
  Transmission Date: 20200409
  Serious: Yes (Disabling)
  Sender: FDA-Public Use
  Company Number: US-TEVA-2019-US-1162459

PATIENT

DRUGS (1)
  1. DOCETAXEL. [Suspect]
     Active Substance: DOCETAXEL
     Dosage: FORM STRENGTH AND UNIT DOSE UNKNOWN
     Dates: start: 2015, end: 2015

REACTIONS (1)
  - Alopecia [Not Recovered/Not Resolved]
